FAERS Safety Report 5996613-6 (Version None)
Quarter: 2008Q4

REPORT INFORMATION
  Report Type: 
  Country: None (occurrence: None)
  Receive Date: 20081204
  Receipt Date: 20081118
  Transmission Date: 20090506
  Serious: Yes (Other)
  Sender: FDA-Public Use
  Company Number: B0547959A

PATIENT
  Age: 56 Year
  Sex: Female

DRUGS (1)
  1. LAPATINIB (FORMULATION UNKNOWN) (GENERIC) (LAPATINIB) [Suspect]
     Indication: BREAST CANCER
     Dosage: ORAL
     Route: 048

REACTIONS (9)
  - ALOPECIA [None]
  - DERMATITIS [None]
  - DRUG INEFFECTIVE [None]
  - DRUG TOXICITY [None]
  - FOLLICULITIS [None]
  - HYPERKERATOSIS [None]
  - PARAKERATOSIS [None]
  - PARONYCHIA [None]
  - PYOGENIC GRANULOMA [None]
